FAERS Safety Report 9351246 (Version 1)
Quarter: 2013Q2

REPORT INFORMATION
  Report Type: Spontaneous
  Country: CH (occurrence: CH)
  Receive Date: 20130617
  Receipt Date: 20130617
  Transmission Date: 20140414
  Serious: Yes (Disabling)
  Sender: FDA-Public Use
  Company Number: CH-BAYER-2013-072899

PATIENT
  Age: 68 Year
  Sex: Male

DRUGS (4)
  1. LEVITRA [Suspect]
     Dosage: 20 MG, UNK
     Route: 048
     Dates: start: 2007, end: 2012
  2. CIALIS [Suspect]
     Dosage: UNK
     Route: 048
     Dates: start: 2007, end: 2012
  3. ZOLADEX [Suspect]
     Indication: PROSTATE CANCER
     Dosage: 10 MG, Q3MON
     Route: 058
     Dates: start: 20030929, end: 20060106
  4. CASODEX [Suspect]
     Indication: PROSTATE CANCER
     Dosage: 50 MG, QD
     Route: 048
     Dates: start: 20030929, end: 20031030

REACTIONS (2)
  - Uveitis [Not Recovered/Not Resolved]
  - Macular oedema [Not Recovered/Not Resolved]
